FAERS Safety Report 19611441 (Version 1)
Quarter: 2021Q3

REPORT INFORMATION
  Report Type: Other
  Country: GB (occurrence: GB)
  Receive Date: 20210727
  Receipt Date: 20210727
  Transmission Date: 20211014
  Serious: Yes (Hospitalization, Disabling, Other)
  Sender: FDA-Public Use
  Company Number: GB-STRIDES ARCOLAB LIMITED-2021SP006568

PATIENT
  Age: 65 Year
  Sex: Male
  Weight: 65.31 kg

DRUGS (3)
  1. IBUPROFEN. [Suspect]
     Active Substance: IBUPROFEN
     Indication: TOOTH ABSCESS
     Dosage: 2400 MILLIGRAM, PER DAY, APPROX 6 X 400 MG TABLETS PER DAY
     Route: 048
     Dates: start: 20200901, end: 20200921
  2. IBUPROFEN. [Suspect]
     Active Substance: IBUPROFEN
     Indication: TOOTHACHE
     Dosage: UNK
     Route: 065
  3. IBUPROFEN. [Suspect]
     Active Substance: IBUPROFEN
     Indication: ILL-DEFINED DISORDER
     Dosage: UNK
     Route: 065

REACTIONS (6)
  - Eating disorder [Unknown]
  - Insomnia [Unknown]
  - Hepatic function abnormal [Recovered/Resolved]
  - Weight decreased [Unknown]
  - Discomfort [Unknown]
  - Off label use [Unknown]

NARRATIVE: CASE EVENT DATE: 202009
